FAERS Safety Report 12846403 (Version 1)
Quarter: 2016Q4

REPORT INFORMATION
  Report Type: Report from Study
  Country: US (occurrence: US)
  Receive Date: 20161014
  Receipt Date: 20161014
  Transmission Date: 20170207
  Serious: No
  Sender: FDA-Public Use
  Company Number: US-009507513-1507USA005976

PATIENT
  Age: 55 Year
  Sex: Male
  Weight: 83.45 kg

DRUGS (8)
  1. MK-0653A STUDY [Suspect]
     Active Substance: EZETIMIBE\SIMVASTATIN
     Indication: ACUTE CORONARY SYNDROME
     Dosage: UNK
     Route: 048
     Dates: start: 20080807
  2. LISINOPRIL. [Concomitant]
     Active Substance: LISINOPRIL
     Dosage: 1 DF, QD
     Route: 048
  3. ZESTRIL [Concomitant]
     Active Substance: LISINOPRIL
     Dosage: 1 DF, QD
     Route: 048
  4. UBIDECARENONE [Concomitant]
     Active Substance: UBIDECARENONE
     Dosage: 1 DF, QD
     Route: 048
  5. PRINIVIL [Concomitant]
     Active Substance: LISINOPRIL
     Dosage: 1 DF, QD
     Route: 048
  6. ASCORBIC ACID. [Concomitant]
     Active Substance: ASCORBIC ACID
     Dosage: 1 DF, QD
     Route: 048
  7. FLAXSEED [Concomitant]
     Active Substance: FLAX SEED
     Dosage: 1 DF, QD
     Route: 048
  8. ASPIRIN. [Concomitant]
     Active Substance: ASPIRIN
     Dosage: 1 DF, QD
     Route: 048

REACTIONS (6)
  - Myopathy [Unknown]
  - Pain [None]
  - Adverse event [Unknown]
  - Fatigue [None]
  - Discomfort [None]
  - Myalgia [Unknown]

NARRATIVE: CASE EVENT DATE: 20120515
